FAERS Safety Report 23404225 (Version 1)
Quarter: 2024Q1

REPORT INFORMATION
  Report Type: Spontaneous
  Country: KR (occurrence: KR)
  Receive Date: 20240116
  Receipt Date: 20240116
  Transmission Date: 20240410
  Serious: Yes (Other)
  Sender: FDA-Public Use
  Company Number: KR-ASTELLAS-2024US001014

PATIENT
  Age: 73 Year
  Sex: Male

DRUGS (2)
  1. MIRABEGRON [Suspect]
     Active Substance: MIRABEGRON
     Indication: Prostatomegaly
     Dosage: 50 MG, ONCE DAILY (ONE TABLET ONCE DAILY SINCE MORE THAN 5 YEARS AGO BEFORE BED)
     Route: 065
  2. MIRABEGRON [Suspect]
     Active Substance: MIRABEGRON
     Indication: Dysuria

REACTIONS (7)
  - Cataract [Unknown]
  - Glaucoma [Not Recovered/Not Resolved]
  - Dry eye [Unknown]
  - Vision blurred [Not Recovered/Not Resolved]
  - Diplopia [Not Recovered/Not Resolved]
  - Visual impairment [Not Recovered/Not Resolved]
  - Off label use [Unknown]
